FAERS Safety Report 7237863-0 (Version None)
Quarter: 2011Q1

REPORT INFORMATION
  Report Type: 
  Country: None (occurrence: None)
  Receive Date: 20110121
  Receipt Date: 20110113
  Transmission Date: 20110831
  Serious: No
  Sender: FDA-Public Use
  Company Number: US-B.I. PHARMACEUTICALS,INC./RIDGEFIELD-2010-BP-14304BP

PATIENT
  Sex: Female

DRUGS (13)
  1. DILTIAZEM [Concomitant]
     Indication: BLOOD PRESSURE
     Dosage: 120 MG
  2. DIFLUNISAL [Concomitant]
     Indication: ARTHRITIS
     Dosage: 500 MG
  3. NEXIUM [Concomitant]
     Indication: GASTROOESOPHAGEAL REFLUX DISEASE
  4. CALCIUM WITH D [Concomitant]
     Indication: SUPPLEMENTATION THERAPY
     Dosage: 600 MG
  5. HYDROCHLOROTHIAZIDE [Concomitant]
     Indication: HYPERTENSION
  6. TRAMADOL HCL [Concomitant]
     Indication: SLEEP DISORDER
     Dosage: 50 MG
  7. CARAFATE [Concomitant]
     Indication: GASTROOESOPHAGEAL REFLUX DISEASE
  8. ALENDEROSTO [Concomitant]
     Indication: BONE DISORDER
  9. FLUTICASONE PROPIONATE [Concomitant]
     Indication: HYPERSENSITIVITY
  10. HYDROCHLOROTHIAZIDE [Concomitant]
     Indication: DIURETIC THERAPY
     Dosage: 12.5 MG
  11. PRADAXA [Suspect]
     Indication: ATRIAL FIBRILLATION
     Dosage: 300 MG
     Route: 048
     Dates: start: 20101123
  12. ADVAIR [Concomitant]
     Indication: ASTHMA
  13. SINGULAIR [Concomitant]
     Indication: HYPERSENSITIVITY
     Dosage: 10 MG

REACTIONS (5)
  - NAUSEA [None]
  - ABDOMINAL DISCOMFORT [None]
  - SINUSITIS [None]
  - PRURITUS [None]
  - ABDOMINAL PAIN UPPER [None]
